FAERS Safety Report 7456787-7 (Version None)
Quarter: 2011Q2

REPORT INFORMATION
  Report Type: 
  Country: None (occurrence: None)
  Receive Date: 20110504
  Receipt Date: 20110425
  Transmission Date: 20111010
  Serious: Yes (Death)
  Sender: FDA-Public Use
  Company Number: US-BIOGENIDEC-2011BI012210

PATIENT
  Age: 37 Year
  Sex: Female

DRUGS (4)
  1. TYSABRI [Suspect]
     Indication: MULTIPLE SCLEROSIS
     Route: 042
     Dates: start: 20090330, end: 20100920
  2. FENTANYL [Concomitant]
     Indication: PAIN
     Dates: end: 20110227
  3. OXYCODONE [Concomitant]
     Indication: PAIN
     Dates: end: 20110227
  4. TYSABRI [Suspect]
     Route: 042
     Dates: start: 20110222, end: 20110222

REACTIONS (1)
  - ACCIDENTAL OVERDOSE [None]
